FAERS Safety Report 5892710-4 (Version None)
Quarter: 2008Q3

REPORT INFORMATION
  Report Type: 
  Country: None (occurrence: None)
  Receive Date: 20080923
  Receipt Date: 20080917
  Transmission Date: 20090109
  Serious: Yes (Other)
  Sender: FDA-Public Use
  Company Number: PHHY2008JP21825

PATIENT
  Age: 83 Year
  Sex: Male

DRUGS (2)
  1. CYCLOSPORINE [Suspect]
     Indication: PSORIASIS
     Route: 048
  2. METHOTREXATE [Suspect]
     Indication: PSORIASIS
     Route: 065

REACTIONS (4)
  - ACTINIC KERATOSIS [None]
  - NODULE [None]
  - SKIN EROSION [None]
  - SQUAMOUS CELL CARCINOMA [None]
